FAERS Safety Report 4557358-2 (Version None)
Quarter: 2005Q1

REPORT INFORMATION
  Report Type: 
  Country: None (occurrence: None)
  Receive Date: 20050119
  Receipt Date: 20050119
  Transmission Date: 20050727
  Serious: Yes (Hospitalization)
  Sender: FDA-Public Use
  Company Number: None

PATIENT
  Sex: Male
  Weight: 81.8 kg

DRUGS (2)
  1. VALPROIC ACID [Suspect]
     Indication: SCHIZOAFFECTIVE DISORDER
     Dosage: 500MG   TID   ORAL
     Route: 048
  2. RISPERDAL [Suspect]
     Dosage: 2MG  BID  ORAL
     Route: 048

REACTIONS (2)
  - NAUSEA [None]
  - VOMITING [None]
